FAERS Safety Report 5567040-0 (Version None)
Quarter: 2007Q4

REPORT INFORMATION
  Report Type: 
  Country: None (occurrence: None)
  Receive Date: 20071219
  Receipt Date: 20071212
  Transmission Date: 20080405
  Serious: Yes (Hospitalization)
  Sender: FDA-Public Use
  Company Number: US-ASTRAZENECA-2007UW28300

PATIENT
  Sex: Female
  Weight: 86.2 kg

DRUGS (12)
  1. SEROQUEL [Suspect]
     Indication: BIPOLAR DISORDER
     Route: 048
  2. SEROQUEL [Suspect]
     Indication: PARANOID PERSONALITY DISORDER
     Route: 048
  3. SEROQUEL [Suspect]
     Indication: PERSONALITY DISORDER
     Route: 048
  4. SEROQUEL [Suspect]
     Route: 048
  5. SEROQUEL [Suspect]
     Route: 048
  6. SEROQUEL [Suspect]
     Route: 048
  7. THYROID MEDICINE [Concomitant]
  8. TEMAZEPAM [Concomitant]
  9. PAXIL [Concomitant]
  10. METFORMIN HCL [Concomitant]
  11. VICODIN [Concomitant]
  12. OXYCONTIN [Concomitant]

REACTIONS (14)
  - AURICULAR SWELLING [None]
  - BLOOD GLUCOSE DECREASED [None]
  - BLOOD GLUCOSE INCREASED [None]
  - DIABETES MELLITUS [None]
  - FEELING ABNORMAL [None]
  - HAEMORRHAGE [None]
  - HYPOGLYCAEMIA [None]
  - ILL-DEFINED DISORDER [None]
  - INFECTION [None]
  - INSOMNIA [None]
  - NASAL MUCOSAL DISORDER [None]
  - NOSE DEFORMITY [None]
  - THROAT CANCER [None]
  - WEIGHT DECREASED [None]
